FAERS Safety Report 17596682 (Version 2)
Quarter: 2020Q3

REPORT INFORMATION
  Report Type: Spontaneous
  Country: US (occurrence: US)
  Receive Date: 20200330
  Receipt Date: 20200703
  Transmission Date: 20201102
  Serious: Yes (Life-Threatening, Other)
  Sender: FDA-Public Use
  Company Number: US-DRREDDYS-USA/USA/20/0121135

PATIENT
  Age: 63 Year
  Sex: Female

DRUGS (4)
  1. SEVOFLURANE. [Suspect]
     Active Substance: SEVOFLURANE
     Indication: HYPNOTHERAPY
  2. AMIODARONE HYDROCHLORIDE. [Suspect]
     Active Substance: AMIODARONE HYDROCHLORIDE
     Indication: ATRIAL FIBRILLATION
  3. WARFARIN [Concomitant]
     Active Substance: WARFARIN
     Indication: ANTICOAGULANT THERAPY
  4. PROPOFOL INJECTABLE EMULSION [Suspect]
     Active Substance: PROPOFOL
     Indication: HYPNOTHERAPY

REACTIONS (10)
  - Myxoedema coma [Recovered/Resolved]
  - Hypoxia [Recovered/Resolved]
  - Apnoeic attack [Recovered/Resolved]
  - Haemodynamic instability [Recovered/Resolved]
  - Ventricular tachycardia [Recovered/Resolved]
  - Torsade de pointes [Recovered/Resolved]
  - Pulseless electrical activity [Recovered/Resolved]
  - Somnolence [Unknown]
  - Electrocardiogram QT prolonged [Recovered/Resolved]
  - Hypothyroidism [Unknown]
